FAERS Safety Report 5979834-8 (Version None)
Quarter: 2008Q4

REPORT INFORMATION
  Report Type: 
  Country: None (occurrence: None)
  Receive Date: 20081128
  Receipt Date: 20081114
  Transmission Date: 20090506
  Serious: Yes (Life-Threatening)
  Sender: FDA-Public Use
  Company Number: 002149

PATIENT
  Age: 12 Year
  Sex: Female

DRUGS (9)
  1. BUSULFEX [Suspect]
     Indication: STEM CELL TRANSPLANT
     Dosage: 4.7 ML, TID, INTRAVENOUS, 4.7 ML, QID; INTRAVENOUS, 4.7 ML, QID; INTRAVENOUS
     Route: 042
     Dates: start: 20080124, end: 20080124
  2. BUSULFEX [Suspect]
     Indication: STEM CELL TRANSPLANT
     Dosage: 4.7 ML, TID, INTRAVENOUS, 4.7 ML, QID; INTRAVENOUS, 4.7 ML, QID; INTRAVENOUS
     Route: 042
     Dates: start: 20080125, end: 20080127
  3. BUSULFEX [Suspect]
     Indication: STEM CELL TRANSPLANT
     Dosage: 4.7 ML, TID, INTRAVENOUS, 4.7 ML, QID; INTRAVENOUS, 4.7 ML, QID; INTRAVENOUS
     Route: 042
     Dates: start: 20080128, end: 20080128
  4. ETOPOSIDE [Concomitant]
  5. FLUDARABINE PHOSPHATE [Concomitant]
  6. VALPROATE SODIUM [Concomitant]
  7. LENOGRASTIM (LENOGRASTIM) [Concomitant]
  8. METHOTREXATE [Concomitant]
  9. TACROLUMIS (TACROLIMUS) [Concomitant]

REACTIONS (11)
  - ACUTE LYMPHOCYTIC LEUKAEMIA RECURRENT [None]
  - ANOREXIA [None]
  - CELLULITIS [None]
  - HEPATIC FUNCTION ABNORMAL [None]
  - HYPOKALAEMIA [None]
  - MALAISE [None]
  - NAIL INFECTION [None]
  - NAUSEA [None]
  - STAPHYLOCOCCAL SEPSIS [None]
  - STOMATITIS [None]
  - VOMITING [None]
